FAERS Safety Report 9840718 (Version 1)
Quarter: 2014Q1

REPORT INFORMATION
  Report Type: Spontaneous
  Country: GB (occurrence: GB)
  Receive Date: 20140124
  Receipt Date: 20140124
  Transmission Date: 20141002
  Serious: Yes (Hospitalization)
  Sender: FDA-Public Use
  Company Number: PHHY2014GB003459

PATIENT
  Age: 24 Year
  Sex: Female

DRUGS (2)
  1. DOXYCYCLINE [Suspect]
     Indication: MALARIA PROPHYLAXIS
     Dosage: 100 MG, QD
     Route: 048
     Dates: start: 20130825
  2. ECHINACEA [Concomitant]
     Indication: NASOPHARYNGITIS
     Dosage: UNK UKN, UNK, 10 TO 15 DROPS FOR 3 TO 4 DAYS

REACTIONS (5)
  - Intracranial pressure increased [Unknown]
  - Papilloedema [Unknown]
  - Abnormal sensation in eye [Unknown]
  - Headache [Unknown]
  - Visual impairment [Unknown]
